FAERS Safety Report 7098879-0 (Version None)
Quarter: 2010Q4

REPORT INFORMATION
  Report Type: 
  Country: None (occurrence: None)
  Receive Date: 20101112
  Receipt Date: 20101108
  Transmission Date: 20110411
  Serious: Yes (Other)
  Sender: FDA-Public Use
  Company Number: JP-PFIZER INC-2010142074

PATIENT
  Sex: Female

DRUGS (2)
  1. XALATAN [Suspect]
     Indication: INTRAOCULAR PRESSURE INCREASED
     Dosage: UNK, ONCE DAILY BEFORE BED
     Route: 031
     Dates: start: 20090101, end: 20100101
  2. XALATAN [Suspect]
     Dosage: UNK DF, 1X/DAY
     Route: 031
     Dates: start: 20100101

REACTIONS (4)
  - HEADACHE [None]
  - INTRAOCULAR PRESSURE INCREASED [None]
  - NAUSEA [None]
  - SURGERY [None]
